FAERS Safety Report 19035961 (Version 1)
Quarter: 2021Q1

REPORT INFORMATION
  Report Type: Spontaneous
  Country: NL (occurrence: NL)
  Receive Date: 20210321
  Receipt Date: 20210321
  Transmission Date: 20210420
  Serious: Yes (Death)
  Sender: FDA-Public Use
  Company Number: NL-TEVA-2021-NL-1891854

PATIENT
  Age: 69 Year
  Sex: Female
  Weight: 65 kg

DRUGS (3)
  1. PERTUZUMAB INFOPL CONC 30MG/ML / PERJETA INFVLST CONC 30MG/ML FLACON 1 [Concomitant]
     Dosage: IV 840 MG , THERAPY START DATE AND END DATE : ASKED BUT UNKNOWN
  2. TRASTUZUMAB INF 150MG(HER/KAN/OGI/ONT/TRA/ZER) / KANJINTI INFUSIEPOEDE [Concomitant]
     Dosage: IV 650 MG , THERAPY START DATE AND END DATE : ASKED BUT UNKNOWN
  3. CAPECITABINE TABLET FO 500MG / BRAND NAME NOT SPECIFIED [Suspect]
     Active Substance: CAPECITABINE
     Indication: BREAST CANCER
     Dosage: 2X DAILY 1150 MG 14 DAY COURSE 1 START 07?01?2020 (DOSE 50%),
     Dates: start: 20210107, end: 20210118

REACTIONS (3)
  - Gastrointestinal inflammation [Fatal]
  - Stomatitis [Fatal]
  - Diarrhoea [Fatal]

NARRATIVE: CASE EVENT DATE: 20210114
